FAERS Safety Report 6887569-2 (Version None)
Quarter: 2010Q3

REPORT INFORMATION
  Report Type: 
  Country: None (occurrence: None)
  Receive Date: 20100708
  Receipt Date: 20091211
  Transmission Date: 20110219
  Serious: Yes (Other)
  Sender: FDA-Public Use
  Company Number: 2009310346

PATIENT
  Age: 39 Year
  Sex: Female
  Weight: 127 kg

DRUGS (2)
  1. CHANTIX [Suspect]
     Dosage: FREDQUENCY: 2X/DAY,, ORAL
     Route: 048
     Dates: start: 20090101, end: 20090101
  2. REISPERDAL CONSTA (RISPERIDONE) [Concomitant]

REACTIONS (2)
  - DRUG HYPERSENSITIVITY [None]
  - PALPITATIONS [None]
